FAERS Safety Report 19282065 (Version 3)
Quarter: 2021Q3

REPORT INFORMATION
  Report Type: Spontaneous
  Country: AU (occurrence: AU)
  Receive Date: 20210520
  Receipt Date: 20210705
  Transmission Date: 20211014
  Serious: Yes (Other)
  Sender: FDA-Public Use
  Company Number: AU-009507513-2105AUS003745

PATIENT
  Age: 56 Year
  Sex: Male

DRUGS (1)
  1. KEYTRUDA [Suspect]
     Active Substance: PEMBROLIZUMAB
     Indication: LUNG ADENOCARCINOMA STAGE IV
     Dosage: UNK, CYCLICAL
     Dates: start: 20190816

REACTIONS (6)
  - Deep vein thrombosis [Unknown]
  - Central venous catheterisation [Unknown]
  - Rash [Unknown]
  - Abdominal pain [Unknown]
  - Blood glucose increased [Unknown]
  - Inappropriate schedule of product administration [Unknown]

NARRATIVE: CASE EVENT DATE: 201909
